APPROVED DRUG PRODUCT: ENZALUTAMIDE
Active Ingredient: ENZALUTAMIDE
Strength: 40MG
Dosage Form/Route: CAPSULE;ORAL
Application: A209645 | Product #001
Applicant: APOTEX INC
Approved: Apr 22, 2022 | RLD: No | RS: No | Type: DISCN